FAERS Safety Report 7997787-8 (Version None)
Quarter: 2011Q4

REPORT INFORMATION
  Report Type: 
  Country: None (occurrence: None)
  Receive Date: 20111221
  Receipt Date: 20110623
  Transmission Date: 20120403
  Serious: No
  Sender: FDA-Public Use
  Company Number: US-PFIZER INC-K201100683

PATIENT
  Age: 71 Year
  Sex: Female

DRUGS (5)
  1. ZYRTEC [Concomitant]
     Dosage: UNK
  2. LISINOPRIL [Concomitant]
     Indication: HYPERTENSION
     Dosage: UNK
  3. CORGARD [Suspect]
     Indication: HYPERTENSION
     Dosage: 20 MG, 1X/DAY
     Route: 048
     Dates: start: 20050101
  4. CORGARD [Suspect]
     Indication: MIGRAINE
     Dosage: 10 MG, 1X/DAY
  5. NEURONTIN [Concomitant]
     Indication: BACK INJURY
     Dosage: UNK

REACTIONS (2)
  - FATIGUE [None]
  - ALOPECIA [None]
